FAERS Safety Report 8586678-X (Version None)
Quarter: 2012Q3

REPORT INFORMATION
  Report Type: 
  Country: None (occurrence: None)
  Receive Date: 20120810
  Receipt Date: 20120807
  Transmission Date: 20120928
  Serious: Yes (Hospitalization, Other)
  Sender: FDA-Public Use
  Company Number: US-ACTELION-A-NJ2012-69411

PATIENT
  Age: 60 Year
  Sex: Female

DRUGS (8)
  1. TRACLEER [Suspect]
     Dosage: UNK
     Route: 048
     Dates: start: 20081210
  2. LASIX [Concomitant]
  3. ASPIRIN [Concomitant]
  4. VENTAVIS [Suspect]
     Indication: PULMONARY ARTERIAL HYPERTENSION
     Dosage: 6-9 TIMES A DAY
     Route: 055
     Dates: start: 20110217
  5. COUMADIN [Concomitant]
  6. TRACLEER [Suspect]
     Indication: PULMONARY ARTERIAL HYPERTENSION
     Dosage: 125 MG, BID
     Route: 048
     Dates: start: 20090130
  7. SILDENAFIL [Concomitant]
  8. PLAVIX [Concomitant]

REACTIONS (2)
  - EMBOLISM VENOUS [None]
  - SWELLING [None]
